FAERS Safety Report 22275522 (Version 1)
Quarter: 2023Q2

REPORT INFORMATION
  Report Type: Spontaneous
  Country: CN (occurrence: CN)
  Receive Date: 20230502
  Receipt Date: 20230502
  Transmission Date: 20230721
  Serious: Yes (Hospitalization, Other)
  Sender: FDA-Public Use
  Company Number: CN-009507513-2305CHN000347

PATIENT
  Age: 53 Year
  Sex: Male

DRUGS (3)
  1. KEYTRUDA [Suspect]
     Active Substance: PEMBROLIZUMAB
     Indication: Oesophageal squamous cell carcinoma stage IV
     Dosage: 200 MG, DAY 1
     Dates: start: 20211118
  2. CAPECITABINE [Suspect]
     Active Substance: CAPECITABINE
     Indication: Oesophageal squamous cell carcinoma stage IV
     Dosage: 800 MG/M2, DAYS 1-5
     Route: 048
     Dates: start: 20211218
  3. CARBOPLATIN [Suspect]
     Active Substance: CARBOPLATIN
     Indication: Oesophageal squamous cell carcinoma stage IV
     Dosage: 400 MG, DAY 1
     Dates: start: 20211218

REACTIONS (5)
  - Haemoptysis [Unknown]
  - Upper gastrointestinal haemorrhage [Unknown]
  - Malignant neoplasm progression [Unknown]
  - Thrombocytopenia [Unknown]
  - Gastrointestinal disorder [Recovering/Resolving]

NARRATIVE: CASE EVENT DATE: 20220103
